FAERS Safety Report 8813495 (Version 2)
Quarter: 2013Q2

REPORT INFORMATION
  Report Type: Spontaneous
  Country: US (occurrence: US)
  Receive Date: 20120927
  Receipt Date: 20130606
  Transmission Date: 20140414
  Serious: No
  Sender: FDA-Public Use
  Company Number: US-AMGEN-USASP2012039014

PATIENT
  Age: 77 Year
  Sex: Female

DRUGS (8)
  1. PROLIA [Suspect]
     Indication: OSTEOPOROSIS POSTMENOPAUSAL
     Dosage: UNK UNK, Q6MO
  2. VITAMIN D [Concomitant]
  3. MULTIVITAMIN [Concomitant]
  4. CALCIUM [Concomitant]
  5. VITAMIN C                          /00008001/ [Concomitant]
     Dosage: 500 MG, BID
  6. SYNTHROID [Concomitant]
  7. CALCIUM WITH VITAMIN D             /00944201/ [Concomitant]
  8. PRAVASTATIN [Concomitant]

REACTIONS (16)
  - Muscular weakness [Not Recovered/Not Resolved]
  - Exercise tolerance decreased [Not Recovered/Not Resolved]
  - Arthropathy [Not Recovered/Not Resolved]
  - Tendonitis [Not Recovered/Not Resolved]
  - Musculoskeletal pain [Not Recovered/Not Resolved]
  - Back pain [Not Recovered/Not Resolved]
  - Meniscus injury [Unknown]
  - Blood chromium [Unknown]
  - Blood test abnormal [Unknown]
  - Joint swelling [Unknown]
  - Muscle atrophy [Unknown]
  - Vitamin D decreased [Unknown]
  - Malaise [Unknown]
  - Tooth disorder [Unknown]
  - Osteopenia [Unknown]
  - Trigger finger [Unknown]
